FAERS Safety Report 4897680-3 (Version None)
Quarter: 2006Q1

REPORT INFORMATION
  Report Type: 
  Country: None (occurrence: None)
  Receive Date: 20060201
  Receipt Date: 20060123
  Transmission Date: 20060701
  Serious: Yes (Death, Hospitalization)
  Sender: FDA-Public Use
  Company Number: US-JNJFOC-20051005600

PATIENT
  Sex: Male
  Weight: 87.5 kg

DRUGS (8)
  1. REMICADE [Suspect]
     Route: 042
  2. REMICADE [Suspect]
     Route: 042
  3. REMICADE [Suspect]
     Dosage: FIRST DOSE
     Route: 042
  4. PREDNISONE [Concomitant]
  5. IRON SUPPLEMENT [Concomitant]
     Dosage: ONCE OR TWICE PER DAY
  6. ASACOL [Concomitant]
  7. AZATHIOPRINE [Concomitant]
  8. AZATHIOPRINE [Concomitant]

REACTIONS (21)
  - ABSCESS INTESTINAL [None]
  - ANAEMIA [None]
  - CARDIAC ARREST [None]
  - COLITIS ULCERATIVE [None]
  - DEEP VEIN THROMBOSIS [None]
  - DIARRHOEA HAEMORRHAGIC [None]
  - DIZZINESS [None]
  - DRUG INEFFECTIVE [None]
  - DYSPNOEA [None]
  - ELECTROCARDIOGRAM T WAVE INVERSION [None]
  - FALL [None]
  - GASTROINTESTINAL HAEMORRHAGE [None]
  - HAEMATOCHEZIA [None]
  - HAEMOGLOBIN DECREASED [None]
  - INFLAMMATORY BOWEL DISEASE [None]
  - IRON DEFICIENCY [None]
  - LOSS OF CONSCIOUSNESS [None]
  - MICROCYTIC ANAEMIA [None]
  - PAIN [None]
  - PULMONARY EMBOLISM [None]
  - PUPIL FIXED [None]
